FAERS Safety Report 9494621 (Version 1)
Quarter: 2013Q3

REPORT INFORMATION
  Report Type: Report from Study
  Country: BR (occurrence: BR)
  Receive Date: 20130903
  Receipt Date: 20130903
  Transmission Date: 20140515
  Serious: Yes (Other)
  Sender: FDA-Public Use
  Company Number: BR-BAYER-2013-105579

PATIENT
  Age: 50 Year
  Sex: Female

DRUGS (2)
  1. BETAFERON [Suspect]
     Indication: MULTIPLE SCLEROSIS
     Dosage: 1 ML, QOD
     Route: 058
     Dates: start: 201205
  2. ATENOLOL [Concomitant]
     Indication: HYPERTENSION
     Dosage: 1 DF, QD
     Route: 048
     Dates: start: 2010

REACTIONS (4)
  - Multiple sclerosis relapse [Recovering/Resolving]
  - Muscular weakness [Recovering/Resolving]
  - Daydreaming [Not Recovered/Not Resolved]
  - Headache [Recovered/Resolved]
